FAERS Safety Report 8534639-9 (Version None)
Quarter: 2012Q3

REPORT INFORMATION
  Report Type: 
  Country: None (occurrence: None)
  Receive Date: 20120724
  Receipt Date: 20120719
  Transmission Date: 20120928
  Serious: Yes (Hospitalization)
  Sender: FDA-Public Use
  Company Number: ES-BRISTOL-MYERS SQUIBB COMPANY-16710899

PATIENT
  Age: 44 Year
  Sex: Male

DRUGS (2)
  1. IBUPROFEN [Concomitant]
     Dates: start: 20120608
  2. IPILIMUMAB [Suspect]
     Indication: MALIGNANT MELANOMA
     Dosage: STRENGTH:3MG/KG VS 10MG/KG,COURSE:2 INTERR:15JUN12
     Route: 042
     Dates: start: 20120525, end: 20120615

REACTIONS (1)
  - PYREXIA [None]
